FAERS Safety Report 9969723 (Version 1)
Quarter: 2014Q1

REPORT INFORMATION
  Report Type: Spontaneous
  Country: US (occurrence: None)
  Receive Date: 20140131
  Receipt Date: 20140131
  Transmission Date: 20141002
  Serious: Yes (Hospitalization)
  Sender: FDA-Public Use
  Company Number: 088742

PATIENT
  Age: 51 Year
  Sex: Female

DRUGS (2)
  1. KEPPRA [Suspect]
     Indication: CONVULSION
     Route: 048
     Dates: start: 20130530
  2. BENADRYL ALLERGY [Suspect]
     Indication: HYPERSENSITIVITY
     Dates: end: 20130530

REACTIONS (2)
  - Convulsion [None]
  - Facial bones fracture [None]
